FAERS Safety Report 4915247-5 (Version None)
Quarter: 2006Q1

REPORT INFORMATION
  Report Type: 
  Country: None (occurrence: None)
  Receive Date: 20060216
  Receipt Date: 20060216
  Transmission Date: 20060701
  Serious: Yes (Hospitalization)
  Sender: FDA-Public Use
  Company Number: None

PATIENT
  Sex: Male
  Weight: 77.1115 kg

DRUGS (1)
  1. INSULIN [Suspect]
     Indication: DIABETES MELLITUS
     Dosage: PRIOR TO ADMISSION

REACTIONS (3)
  - BLOOD GLUCOSE DECREASED [None]
  - FALL [None]
  - HEAD INJURY [None]
